FAERS Safety Report 15825611 (Version 1)
Quarter: 2019Q1

REPORT INFORMATION
  Report Type: Spontaneous
  Country: US (occurrence: US)
  Receive Date: 20190115
  Receipt Date: 20190115
  Transmission Date: 20190417
  Serious: Yes (Other)
  Sender: FDA-Public Use
  Company Number: US-NOVOPROD-641363

PATIENT
  Sex: Female

DRUGS (1)
  1. NOVOLOG [Suspect]
     Active Substance: INSULIN ASPART
     Indication: TYPE 1 DIABETES MELLITUS
     Dosage: SLIDIING SCALE
     Route: 058
     Dates: start: 2004

REACTIONS (5)
  - Condition aggravated [Not Recovered/Not Resolved]
  - Cataract operation [Unknown]
  - Blood glucose decreased [Recovering/Resolving]
  - Retinopathy [Not Recovered/Not Resolved]
  - Blood glucose increased [Recovering/Resolving]
